FAERS Safety Report 21527522 (Version 2)
Quarter: 2022Q4

REPORT INFORMATION
  Report Type: Spontaneous
  Country: JP (occurrence: JP)
  Receive Date: 20221031
  Receipt Date: 20221109
  Transmission Date: 20230113
  Serious: Yes (Hospitalization, Other)
  Sender: FDA-Public Use
  Company Number: JP-Accord-283739

PATIENT
  Age: 54 Year
  Sex: Male

DRUGS (3)
  1. METHOTREXATE [Suspect]
     Active Substance: METHOTREXATE
     Indication: Central nervous system lymphoma
     Dosage: 3.5 G/M2, DOSE REDUCED TO 1.5 G/M2 THEN GRADUALLY INCREASED TO 3.5 G/M2
     Route: 042
  2. PROCARBAZINE [Suspect]
     Active Substance: PROCARBAZINE
     Indication: Central nervous system lymphoma
     Dosage: 100 MG/M2/D FOR 7 DAYS
     Route: 048
  3. VINCRISTINE [Suspect]
     Active Substance: VINCRISTINE
     Indication: Central nervous system lymphoma
     Dosage: 1.4 MG/M2
     Route: 042

REACTIONS (5)
  - Acute kidney injury [Recovered/Resolved]
  - Hyperuricaemia [Recovered/Resolved]
  - Gout [Unknown]
  - Tumour lysis syndrome [Recovered/Resolved]
  - Urate nephropathy [Recovered/Resolved]
